FAERS Safety Report 26152503 (Version 1)
Quarter: 2025Q4

REPORT INFORMATION
  Report Type: Spontaneous
  Country: US (occurrence: US)
  Receive Date: 20251214
  Receipt Date: 20251214
  Transmission Date: 20260117
  Serious: Yes (Death)
  Sender: JOHNSON AND JOHNSON
  Company Number: US-JNJFOC-20251218874

PATIENT
  Age: 61 Year
  Sex: Male

DRUGS (1)
  1. OPSYNVI [Suspect]
     Active Substance: MACITENTAN\TADALAFIL
     Indication: Product used for unknown indication

REACTIONS (1)
  - Death [Fatal]
